FAERS Safety Report 9669956 (Version 1)
Quarter: 2013Q4

REPORT INFORMATION
  Report Type: Spontaneous
  Country: US (occurrence: US)
  Receive Date: 20131105
  Receipt Date: 20131105
  Transmission Date: 20140711
  Serious: Yes (Hospitalization)
  Sender: FDA-Public Use
  Company Number: US-GLAXOSMITHKLINE-A1048318A

PATIENT
  Age: 51 Year
  Sex: Female

DRUGS (1)
  1. VENTOLIN [Suspect]
     Indication: RESPIRATORY DISORDER
     Dosage: 90MCG UNKNOWN
     Route: 055
     Dates: start: 20031101

REACTIONS (2)
  - Dyspnoea [Not Recovered/Not Resolved]
  - Hypertension [Not Recovered/Not Resolved]
